FAERS Safety Report 6837411-0 (Version None)
Quarter: 2010Q3

REPORT INFORMATION
  Report Type: 
  Country: None (occurrence: None)
  Receive Date: 20100713
  Receipt Date: 20070511
  Transmission Date: 20110219
  Serious: No
  Sender: FDA-Public Use
  Company Number: US-PFIZER INC-2007039221

PATIENT
  Sex: Male
  Weight: 85 kg

DRUGS (9)
  1. CHANTIX [Suspect]
     Indication: SMOKING CESSATION THERAPY
     Dates: start: 20070101, end: 20070101
  2. ZOCOR [Concomitant]
  3. ATENOLOL [Concomitant]
  4. ISMO [Concomitant]
  5. ACETYLSALICYLIC ACID [Concomitant]
  6. AVODART [Concomitant]
  7. NIACIN [Concomitant]
  8. NEXIUM [Concomitant]
  9. VITAMINS [Concomitant]

REACTIONS (2)
  - ABDOMINAL PAIN UPPER [None]
  - NAUSEA [None]
